FAERS Safety Report 10952373 (Version 2)
Quarter: 2015Q3

REPORT INFORMATION
  Report Type: Spontaneous
  Country: US (occurrence: US)
  Receive Date: 20150325
  Receipt Date: 20150729
  Transmission Date: 20151125
  Serious: Yes (Hospitalization, Other)
  Sender: FDA-Public Use
  Company Number: US-BAYER-2015-048645

PATIENT
  Age: 24 Year
  Sex: Female
  Weight: 124.26 kg

DRUGS (1)
  1. MIRENA [Suspect]
     Active Substance: LEVONORGESTREL
     Indication: CONTRACEPTION
     Dosage: 20 MCG/24HR, CONT
     Route: 015
     Dates: start: 20091023, end: 20130621

REACTIONS (15)
  - Uterine perforation [None]
  - Device difficult to use [None]
  - Pain [None]
  - Complication of device removal [None]
  - Injury [None]
  - Emotional distress [None]
  - Loss of libido [None]
  - Device breakage [None]
  - Abdominal pain [None]
  - Headache [None]
  - Depression [None]
  - Dyspareunia [None]
  - Menstruation irregular [Recovered/Resolved]
  - Anxiety [None]
  - Abdominal pain lower [None]

NARRATIVE: CASE EVENT DATE: 20120423
